FAERS Safety Report 21475967 (Version 1)
Quarter: 2022Q4

REPORT INFORMATION
  Report Type: Spontaneous
  Country: US (occurrence: None)
  Receive Date: 20221019
  Receipt Date: 20221019
  Transmission Date: 20230112
  Serious: No
  Sender: FDA-Public Use
  Company Number: US-ADAMAS Pharma-ADM202207-001920

PATIENT
  Age: 64 Year
  Sex: Female

DRUGS (3)
  1. GOCOVRI [Suspect]
     Active Substance: AMANTADINE
     Indication: Dyskinesia
     Route: 048
     Dates: start: 20210114
  2. GOCOVRI [Suspect]
     Active Substance: AMANTADINE
     Indication: Parkinson^s disease
  3. INBRIJA [Suspect]
     Active Substance: LEVODOPA
     Indication: Product used for unknown indication
     Dosage: NOT PROVIDED

REACTIONS (2)
  - Parkinson^s disease [Not Recovered/Not Resolved]
  - Adverse event [Recovered/Resolved]
